FAERS Safety Report 6407703-8 (Version None)
Quarter: 2009Q4

REPORT INFORMATION
  Report Type: 
  Country: None (occurrence: None)
  Receive Date: 20091020
  Receipt Date: 20091015
  Transmission Date: 20100525
  Serious: Yes (Life-Threatening, Hospitalization)
  Sender: FDA-Public Use
  Company Number: FR-GILEAD-2009-0024760

PATIENT
  Age: 43 Year
  Sex: Female

DRUGS (8)
  1. TRUVADA [Suspect]
     Indication: HIV INFECTION
     Route: 048
     Dates: start: 20090422
  2. TRUVADA [Suspect]
     Route: 048
     Dates: start: 20080208, end: 20080530
  3. NORVIR [Suspect]
     Indication: HIV INFECTION
     Route: 048
     Dates: start: 20090422
  4. NORVIR [Suspect]
     Route: 048
     Dates: start: 20080208, end: 20080530
  5. REYATAZ [Suspect]
     Indication: HIV INFECTION
     Route: 048
     Dates: start: 20090422
  6. REYATAZ [Suspect]
     Dates: start: 20080208, end: 20080530
  7. COMBIVIR [Suspect]
     Indication: HIV INFECTION
     Route: 048
     Dates: start: 20080530, end: 20090422
  8. KALETRA [Suspect]
     Indication: HIV INFECTION
     Route: 048
     Dates: start: 20080530, end: 20090422

REACTIONS (1)
  - MYOCARDIAL INFARCTION [None]
